FAERS Safety Report 17834630 (Version 1)
Quarter: 2020Q2

REPORT INFORMATION
  Report Type: Report from Study
  Country: None (occurrence: US)
  Receive Date: 20200528
  Receipt Date: 20200528
  Transmission Date: 20200714
  Serious: Yes (Other)
  Sender: FDA-Public Use
  Company Number: US-ABBVIE-20K-163-3418712-00

PATIENT
  Sex: Female

DRUGS (1)
  1. HUMIRA [Suspect]
     Active Substance: ADALIMUMAB
     Indication: RHEUMATOID ARTHRITIS
     Dosage: CF PEN
     Route: 058
     Dates: end: 201904

REACTIONS (6)
  - Nerve injury [Unknown]
  - Pain [Unknown]
  - Rheumatoid arthritis [Unknown]
  - Aphonia [Unknown]
  - Post procedural complication [Unknown]
  - Dental implantation [Unknown]

NARRATIVE: CASE EVENT DATE: 2019
